FAERS Safety Report 20742143 (Version 1)
Quarter: 2022Q2

REPORT INFORMATION
  Report Type: Report from Study
  Country: US (occurrence: US)
  Receive Date: 20220423
  Receipt Date: 20220423
  Transmission Date: 20220721
  Serious: Yes (Other)
  Sender: FDA-Public Use
  Company Number: US-Accord-261529

PATIENT
  Sex: Male
  Weight: 67.59 kg

DRUGS (8)
  1. CLOZAPINE [Suspect]
     Active Substance: CLOZAPINE
     Indication: Schizophrenia
     Dosage: BY MOUTH AT BEDTIME
  2. COLACE [Concomitant]
     Active Substance: DOCUSATE SODIUM
  3. FLUVOXAMINE [Concomitant]
     Active Substance: FLUVOXAMINE
  4. MIRALAX [Concomitant]
     Active Substance: POLYETHYLENE GLYCOL 3350
  5. MIRAPEX [Concomitant]
     Active Substance: PRAMIPEXOLE DIHYDROCHLORIDE
  6. DDAVP [Concomitant]
     Active Substance: DESMOPRESSIN ACETATE
  7. LAMICTAL [Concomitant]
     Active Substance: LAMOTRIGINE
  8. MODAFINIL [Concomitant]
     Active Substance: MODAFINIL

REACTIONS (2)
  - Schizophrenia [Not Recovered/Not Resolved]
  - Delusion [Not Recovered/Not Resolved]
